FAERS Safety Report 9904390 (Version 2)
Quarter: 2014Q2

REPORT INFORMATION
  Report Type: Report from Study
  Country: DE (occurrence: DE)
  Receive Date: 20140218
  Receipt Date: 20140407
  Transmission Date: 20141212
  Serious: Yes (Other)
  Sender: FDA-Public Use
  Company Number: DE-BAYER-2014-023943

PATIENT
  Age: 54 Year
  Sex: Female
  Weight: 95 kg

DRUGS (2)
  1. BETAFERON [Suspect]
     Indication: MULTIPLE SCLEROSIS
     Dosage: 1 VIAL, QOD
     Dates: start: 2001, end: 201401
  2. FAMPRIDINE [Concomitant]
     Dosage: UNK
     Dates: start: 201308

REACTIONS (6)
  - Skin reaction [None]
  - Dermatitis [None]
  - Inflammation [None]
  - Peripheral swelling [Not Recovered/Not Resolved]
  - Erythema [Recovered/Resolved]
  - Influenza like illness [None]
